FAERS Safety Report 20447548 (Version 1)
Quarter: 2022Q1

REPORT INFORMATION
  Report Type: Spontaneous
  Country: CH (occurrence: CH)
  Receive Date: 20220209
  Receipt Date: 20220209
  Transmission Date: 20220423
  Serious: Yes (Hospitalization, Other)
  Sender: FDA-Public Use
  Company Number: CH-BAYER-2022A019957

PATIENT
  Age: 68 Year
  Sex: Male
  Weight: 84 kg

DRUGS (3)
  1. XARELTO [Suspect]
     Active Substance: RIVAROXABAN
     Indication: Intracardiac thrombus
     Dosage: 20 MG, QD
     Route: 048
     Dates: start: 20160304, end: 20181216
  2. APIXABAN [Concomitant]
     Active Substance: APIXABAN
     Dosage: UNK
     Dates: start: 20181222
  3. METOPROLOL [Concomitant]
     Active Substance: METOPROLOL
     Dosage: UNK
     Dates: start: 20181220

REACTIONS (7)
  - Atrial fibrillation [Recovered/Resolved]
  - Gastrointestinal haemorrhage [Recovered/Resolved]
  - Abdominal tenderness [Recovered/Resolved]
  - Hypotension [Recovered/Resolved]
  - Colon adenoma [Recovered/Resolved]
  - Hypotension [Unknown]
  - Off label use [Unknown]

NARRATIVE: CASE EVENT DATE: 20160304
